FAERS Safety Report 16573206 (Version 7)
Quarter: 2021Q4

REPORT INFORMATION
  Report Type: Spontaneous
  Country: JP (occurrence: JP)
  Receive Date: 20190715
  Receipt Date: 20211220
  Transmission Date: 20220303
  Serious: Yes (Hospitalization, Other)
  Sender: FDA-Public Use
  Company Number: JP-BRISTOL-MYERS SQUIBB COMPANY-BMS-2019-063888

PATIENT
  Age: 71 Year
  Sex: Male

DRUGS (4)
  1. YERVOY [Suspect]
     Active Substance: IPILIMUMAB
     Indication: Metastatic renal cell carcinoma
     Dosage: ONE TIME DOSE
     Route: 041
     Dates: start: 20190605, end: 20190605
  2. YERVOY [Suspect]
     Active Substance: IPILIMUMAB
     Dosage: ONE TIME DOSE
     Route: 065
     Dates: start: 20190626, end: 20190626
  3. OPDIVO [Suspect]
     Active Substance: NIVOLUMAB
     Indication: Metastatic renal cell carcinoma
     Dosage: ONE TIME DOSE
     Route: 041
     Dates: start: 20190605, end: 20190605
  4. OPDIVO [Suspect]
     Active Substance: NIVOLUMAB
     Dosage: ONE TIME DOSE
     Route: 065
     Dates: start: 20190626, end: 20190626

REACTIONS (11)
  - Hyperthyroidism [Not Recovered/Not Resolved]
  - Myasthenia gravis [Recovering/Resolving]
  - Myositis [Recovering/Resolving]
  - Thyroiditis [Not Recovered/Not Resolved]
  - Rhabdomyolysis [Unknown]
  - Decreased appetite [Recovered/Resolved]
  - Blood corticotrophin increased [Unknown]
  - Cortisol increased [Unknown]
  - Hypothyroidism [Not Recovered/Not Resolved]
  - Blood creatine phosphokinase MB increased [Unknown]
  - Nausea [Recovered/Resolved]

NARRATIVE: CASE EVENT DATE: 20190626
